FAERS Safety Report 12995502 (Version 4)
Quarter: 2018Q2

REPORT INFORMATION
  Report Type: Report from Study
  Country: BR (occurrence: BR)
  Receive Date: 20161202
  Receipt Date: 20180411
  Transmission Date: 20180711
  Serious: Yes (Other)
  Sender: FDA-Public Use
  Company Number: BR-JNJFOC-20161200561

PATIENT
  Age: 45 Year
  Sex: Female
  Weight: 68 kg

DRUGS (8)
  1. FOLIC ACID. [Concomitant]
     Active Substance: FOLIC ACID
     Route: 065
  2. SIMPONI [Suspect]
     Active Substance: GOLIMUMAB
     Indication: RHEUMATOID ARTHRITIS
     Route: 058
     Dates: start: 20160524
  3. TENOXICAM [Concomitant]
     Active Substance: TENOXICAM
     Route: 065
  4. SIMPONI [Suspect]
     Active Substance: GOLIMUMAB
     Indication: RHEUMATOID ARTHRITIS
     Route: 058
     Dates: start: 20160521
  5. LORATADINE. [Concomitant]
     Active Substance: LORATADINE
     Route: 065
  6. SIMPONI [Suspect]
     Active Substance: GOLIMUMAB
     Indication: RHEUMATOID ARTHRITIS
     Route: 058
     Dates: start: 20160907
  7. CHLORTHALIDONE. [Concomitant]
     Active Substance: CHLORTHALIDONE
     Route: 065
  8. METHOTREXATE. [Concomitant]
     Active Substance: METHOTREXATE
     Route: 065

REACTIONS (18)
  - Acne [Recovered/Resolved]
  - Product storage error [Unknown]
  - Gait disturbance [Unknown]
  - Therapeutic response unexpected [Unknown]
  - Therapeutic response decreased [Unknown]
  - Arrhythmia [Unknown]
  - Hormone level abnormal [Recovered/Resolved]
  - Vulvovaginal candidiasis [Unknown]
  - Pharyngeal oedema [Unknown]
  - Rhinitis [Not Recovered/Not Resolved]
  - Weight decreased [Unknown]
  - Treatment noncompliance [Unknown]
  - Pneumonia [Unknown]
  - Pain [Unknown]
  - Toe operation [Unknown]
  - Blood pressure fluctuation [Not Recovered/Not Resolved]
  - Skin lesion [Recovering/Resolving]
  - Stress [Unknown]

NARRATIVE: CASE EVENT DATE: 201608
